FAERS Safety Report 16488753 (Version 1)
Quarter: 2019Q2

REPORT INFORMATION
  Report Type: Report from Study
  Country: US (occurrence: US)
  Receive Date: 20190627
  Receipt Date: 20190627
  Transmission Date: 20190711
  Serious: Yes (Other)
  Sender: FDA-Public Use
  Company Number: US-BIOGEN-2019BI00753668

PATIENT
  Sex: Female

DRUGS (1)
  1. TYSABRI [Suspect]
     Active Substance: NATALIZUMAB
     Indication: MULTIPLE SCLEROSIS
     Route: 065
     Dates: start: 20190412

REACTIONS (7)
  - Pulmonary eosinophilia [Unknown]
  - Pain [Unknown]
  - Cough [Unknown]
  - Imaging procedure abnormal [Unknown]
  - Inflammation [Unknown]
  - Infection [Unknown]
  - Neoplasm malignant [Unknown]
